FAERS Safety Report 4885592-0 (Version None)
Quarter: 2006Q1

REPORT INFORMATION
  Report Type: 
  Country: None (occurrence: None)
  Receive Date: 20060119
  Receipt Date: 20060110
  Transmission Date: 20060701
  Serious: Yes (Hospitalization)
  Sender: FDA-Public Use
  Company Number: US-MERCK-0601USA01377

PATIENT
  Age: 44 Year
  Sex: Female
  Weight: 112 kg

DRUGS (4)
  1. VIOXX [Suspect]
     Indication: ARTHRITIS
     Route: 048
  2. FLEXERIL [Concomitant]
     Route: 065
  3. DARVOCET-N 50 [Concomitant]
     Route: 065
  4. AMBIEN [Concomitant]
     Route: 065

REACTIONS (1)
  - MYOCARDIAL INFARCTION [None]
